APPROVED DRUG PRODUCT: DESOXIMETASONE
Active Ingredient: DESOXIMETASONE
Strength: 0.25%
Dosage Form/Route: OINTMENT;TOPICAL
Application: A206792 | Product #001 | TE Code: AB
Applicant: NOVEL LABORATORIES INC
Approved: May 10, 2016 | RLD: No | RS: No | Type: RX